FAERS Safety Report 17106515 (Version 1)
Quarter: 2019Q4

REPORT INFORMATION
  Report Type: Spontaneous
  Country: US (occurrence: US)
  Receive Date: 20191203
  Receipt Date: 20191203
  Transmission Date: 20200122
  Serious: No
  Sender: FDA-Public Use
  Company Number: US-PFIZER INC-2019519970

PATIENT
  Sex: Female

DRUGS (6)
  1. AZITHROMYCIN ANHYDROUS. [Suspect]
     Active Substance: AZITHROMYCIN ANHYDROUS
     Dosage: UNK
  2. DRONEDARONE [Suspect]
     Active Substance: DRONEDARONE
     Dosage: UNK
  3. HYDROCODONE [Suspect]
     Active Substance: HYDROCODONE
     Dosage: UNK
  4. SOTALOL. [Suspect]
     Active Substance: SOTALOL
     Dosage: UNK
  5. PHENTERMINE. [Suspect]
     Active Substance: PHENTERMINE
     Dosage: UNK
  6. SEROTONIN (5HT3) ANTAGONISTS [Suspect]
     Active Substance: UNSPECIFIED INGREDIENT
     Dosage: UNK

REACTIONS (1)
  - Drug hypersensitivity [Unknown]
